FAERS Safety Report 4786240-0 (Version None)
Quarter: 2005Q3

REPORT INFORMATION
  Report Type: 
  Country: None (occurrence: None)
  Receive Date: 20050926
  Receipt Date: 20050523
  Transmission Date: 20060218
  Serious: Yes (Hospitalization, Other)
  Sender: FDA-Public Use
  Company Number: 2005055557

PATIENT
  Age: 46 Year
  Sex: Female
  Weight: 112.0385 kg

DRUGS (5)
  1. NARDIL [Suspect]
     Indication: BIPOLAR I DISORDER
     Dosage: 120 MG (60 MG, 2 IN 1 D), ORAL
     Route: 048
     Dates: end: 20050301
  2. LEVOTHYROXINE SODIUM [Concomitant]
  3. NAPROXEN [Concomitant]
  4. LITHIUM CARBONATE [Concomitant]
  5. CLONAZEPAM [Concomitant]

REACTIONS (15)
  - DECREASED APPETITE [None]
  - DEPRESSION [None]
  - DYSGEUSIA [None]
  - FATIGUE [None]
  - HEADACHE [None]
  - INSOMNIA [None]
  - LIBIDO DECREASED [None]
  - NAUSEA [None]
  - NIGHTMARE [None]
  - PAIN [None]
  - PERSONALITY CHANGE [None]
  - PRURITUS GENERALISED [None]
  - SCAB [None]
  - SUICIDAL IDEATION [None]
  - WEIGHT DECREASED [None]
